FAERS Safety Report 18104555 (Version 4)
Quarter: 2021Q2

REPORT INFORMATION
  Report Type: Spontaneous
  Country: US (occurrence: US)
  Receive Date: 20200803
  Receipt Date: 20210420
  Transmission Date: 20210717
  Serious: Yes (Disabling)
  Sender: FDA-Public Use
  Company Number: US-TEVA-2020-US-1808900

PATIENT
  Age: 26 Year
  Sex: Female

DRUGS (12)
  1. DOCETAXEL SANDOZ [Suspect]
     Active Substance: DOCETAXEL
     Indication: BREAST CANCER FEMALE
     Dosage: DOSAGE FORM: 75MG
     Dates: start: 20131004, end: 20140115
  2. CYTOXAN [Concomitant]
     Active Substance: CYCLOPHOSPHAMIDE
     Indication: BREAST CANCER FEMALE
     Dosage: DOSAGE:UNKNOWN; NUMBER OF CYCLES: 06; EVERY THREE WEEKS
     Route: 065
     Dates: start: 20131004, end: 20140115
  3. DECADRON [Concomitant]
     Active Substance: DEXAMETHASONE
  4. CIPRO [Concomitant]
     Active Substance: CIPROFLOXACIN HYDROCHLORIDE
  5. ATIVAN [Concomitant]
     Active Substance: LORAZEPAM
  6. HYDROCODONE [Concomitant]
     Active Substance: HYDROCODONE
     Dates: start: 2007, end: 2007
  7. HYDROCODONE [Concomitant]
     Active Substance: HYDROCODONE
     Dates: start: 200809, end: 200810
  8. ADRIAMYCIN [Concomitant]
     Active Substance: DOXORUBICIN HYDROCHLORIDE
     Indication: BREAST CANCER FEMALE
     Dosage: DOSAGE:UNKNOWN; NUMBER OF CYCLES: 06; EVERY THREE WEEKS
     Route: 065
     Dates: start: 20131004, end: 20140115
  9. PHENERGAN [Concomitant]
     Active Substance: PROMETHAZINE HYDROCHLORIDE
  10. DOCETAXEL SANOFI WINTHROP [Suspect]
     Active Substance: DOCETAXEL
     Indication: BREAST CANCER FEMALE
     Dosage: DOSAGE FORM: 75MG
     Dates: start: 20131004, end: 20140115
  11. ZOFRAN [Concomitant]
     Active Substance: ONDANSETRON HYDROCHLORIDE
  12. DOCETAXEL HOSPIRA [Suspect]
     Active Substance: DOCETAXEL
     Indication: BREAST CANCER FEMALE
     Dosage: DOSAGE FORM: 75MG
     Dates: start: 20131004, end: 20140115

REACTIONS (4)
  - Madarosis [Not Recovered/Not Resolved]
  - Hair texture abnormal [Not Recovered/Not Resolved]
  - Alopecia areata [Not Recovered/Not Resolved]
  - Hair colour changes [Not Recovered/Not Resolved]

NARRATIVE: CASE EVENT DATE: 2014
